FAERS Safety Report 13720928 (Version 3)
Quarter: 2017Q3

REPORT INFORMATION
  Report Type: Spontaneous
  Country: FR (occurrence: FR)
  Receive Date: 20170706
  Receipt Date: 20170724
  Transmission Date: 20171127
  Serious: Yes (Other)
  Sender: FDA-Public Use
  Company Number: FR-AMGEN-FRASP2017101959

PATIENT

DRUGS (1)
  1. NEUPOGEN [Suspect]
     Active Substance: FILGRASTIM
     Indication: PRODUCT USED FOR UNKNOWN INDICATION
     Dosage: UNK, AFTER CHEMO (FOR 5 DAYS, AFTER 3 DAYS OF CYCLE)
     Route: 065
     Dates: start: 201610, end: 201702

REACTIONS (2)
  - Skin haemorrhage [Not Recovered/Not Resolved]
  - Acne [Not Recovered/Not Resolved]
